FAERS Safety Report 16342959 (Version 1)
Quarter: 2019Q2

REPORT INFORMATION
  Report Type: Report from Study
  Country: US (occurrence: US)
  Receive Date: 20190522
  Receipt Date: 20190522
  Transmission Date: 20190711
  Serious: Yes (Other)
  Sender: FDA-Public Use
  Company Number: US-GILEAD-2019-0409135

PATIENT
  Age: 40 Year
  Sex: Female

DRUGS (17)
  1. PERTZYE [Suspect]
     Active Substance: PANCRELIPASE AMYLASE\PANCRELIPASE LIPASE\PANCRELIPASE PROTEASE
     Indication: CYSTIC FIBROSIS
     Dosage: TAKE 8 TO 9 CAPS PO WITH MEALS AND 6 CAPS WITH SNACKS
     Route: 048
     Dates: start: 20160102
  2. LINZESS [Concomitant]
     Active Substance: LINACLOTIDE
  3. VALACYCLOVIR HCL [Concomitant]
     Active Substance: VALACYCLOVIR HYDROCHLORIDE
  4. TRINTELLIX [Concomitant]
     Active Substance: VORTIOXETINE HYDROBROMIDE
  5. ELIQUIS [Concomitant]
     Active Substance: APIXABAN
  6. LEVOTHYROXIN [Concomitant]
     Active Substance: LEVOTHYROXINE
  7. OXYCODONE [Concomitant]
     Active Substance: OXYCODONE
  8. TOBRAMYCIN. [Suspect]
     Active Substance: TOBRAMYCIN
     Indication: CYSTIC FIBROSIS
     Dosage: 1 DOSAGE FORM, BID
     Route: 055
     Dates: start: 20170802
  9. ACYCLOVIR [ACICLOVIR] [Concomitant]
     Active Substance: ACYCLOVIR
  10. LUPRON [Concomitant]
     Active Substance: LEUPROLIDE ACETATE
  11. NORETHINDRONE [NORETHISTERONE] [Concomitant]
  12. SODIUM CHLORIDE. [Suspect]
     Active Substance: SODIUM CHLORIDE
     Indication: CYSTIC FIBROSIS
     Dosage: INHALE 1 VIAL EVERY 12 HOURS
     Route: 055
     Dates: start: 20160108
  13. ESOMEPRA [Concomitant]
     Active Substance: ESOMEPRAZOLE
  14. NOVOLOG [Concomitant]
     Active Substance: INSULIN ASPART
  15. PULMOZYME [Suspect]
     Active Substance: DORNASE ALFA
     Indication: CYSTIC FIBROSIS
     Dosage: 1 VIAL QD
     Route: 055
     Dates: start: 20161108
  16. AZTREONAM LYSINE [Suspect]
     Active Substance: AZTREONAM LYSINE
     Indication: CYSTIC FIBROSIS
     Dosage: TID 28 DAYS ON/OFF
     Route: 055
  17. ROPINIROLE. [Concomitant]
     Active Substance: ROPINIROLE

REACTIONS (1)
  - Haemoptysis [Unknown]
